FAERS Safety Report 10901138 (Version 2)
Quarter: 2015Q1

REPORT INFORMATION
  Report Type: Report from Study
  Country: CN (occurrence: CN)
  Receive Date: 20150310
  Receipt Date: 20150316
  Transmission Date: 20150721
  Serious: Yes (Death, Life-Threatening, Other)
  Sender: FDA-Public Use
  Company Number: CN-PFIZER INC-2015028352

PATIENT
  Age: 81 Year
  Sex: Male
  Weight: 54 kg

DRUGS (31)
  1. POTASSIUM CHLORIDE. [Concomitant]
     Active Substance: POTASSIUM CHLORIDE
     Indication: LARGE INTESTINE PERFORATION
     Dosage: 2.5 G, 1X/DAY
     Route: 041
     Dates: start: 20150119, end: 201501
  2. HUMAN ALBUMIN ^BEHRING^ [Concomitant]
     Indication: LARGE INTESTINE PERFORATION
     Dosage: 20 G, 1X/DAY
     Route: 041
     Dates: start: 20150119, end: 20150121
  3. HUMAN ALBUMIN ^BEHRING^ [Concomitant]
     Dosage: 10 G, 1X/DAY
     Route: 041
     Dates: start: 20150126, end: 20150126
  4. HUMAN ALBUMIN ^BEHRING^ [Concomitant]
     Dosage: 10 G, 2X/DAY
     Route: 041
     Dates: start: 201501, end: 20150130
  5. PANTOPRAZOLE [Concomitant]
     Active Substance: PANTOPRAZOLE SODIUM
     Dosage: 60 MG, 2X/DAY
     Route: 041
     Dates: start: 20150122, end: 20150129
  6. HUMAN ALBUMIN ^BEHRING^ [Concomitant]
     Dosage: 10 G, 1X/DAY
     Route: 041
     Dates: start: 20150122, end: 20150122
  7. METHYLPREDNISOLONE. [Concomitant]
     Active Substance: METHYLPREDNISOLONE
     Indication: PROPHYLAXIS
     Dosage: 40 MG, SINGLE
     Route: 041
     Dates: start: 20150121, end: 20150121
  8. TORASEMIDE [Concomitant]
     Active Substance: TORSEMIDE
     Indication: PROPHYLAXIS
     Dosage: 15 MG, SINGLE
     Route: 041
     Dates: start: 20150122, end: 20150122
  9. TORASEMIDE [Concomitant]
     Active Substance: TORSEMIDE
     Dosage: 5 MG, SINGLE
     Route: 041
     Dates: start: 20150127, end: 20150127
  10. LENTINAN [Concomitant]
     Active Substance: LENTINAN
     Indication: LARGE INTESTINE PERFORATION
     Dosage: 1 MG, 1X/DAY
     Route: 041
     Dates: start: 20150119
  11. AMBROXOL [Concomitant]
     Active Substance: AMBROXOL
     Indication: LARGE INTESTINE PERFORATION
     Dosage: 120 MG, 2X/DAY
     Route: 041
     Dates: start: 20150119
  12. TRAMADOL [Concomitant]
     Active Substance: TRAMADOL
     Indication: ANALGESIC THERAPY
     Dosage: 100 MG, SINGLE
     Route: 030
     Dates: start: 20150119, end: 20150119
  13. CALCIUM GLUCONATE. [Concomitant]
     Active Substance: CALCIUM GLUCONATE
     Dosage: 20 ML, SINGLE
     Route: 041
     Dates: start: 20150126, end: 20150126
  14. TIGECYCLINE [Suspect]
     Active Substance: TIGECYCLINE
     Indication: LARGE INTESTINE PERFORATION
     Dosage: UNK
     Route: 041
     Dates: start: 20150119, end: 20150126
  15. PANTOPRAZOLE [Concomitant]
     Active Substance: PANTOPRAZOLE SODIUM
     Indication: LARGE INTESTINE PERFORATION
     Dosage: 60 MG, 2X/DAY
     Route: 041
     Dates: start: 20150119, end: 20150119
  16. SUCCINYLATED GELATIN [Concomitant]
     Active Substance: SUCCINYLATED GELATIN
     Indication: LARGE INTESTINE PERFORATION
     Dosage: 20 G, 1X/DAY
     Route: 041
     Dates: start: 20150119, end: 20150120
  17. FUROSEMIDE. [Concomitant]
     Active Substance: FUROSEMIDE
     Indication: PROPHYLAXIS
     Dosage: 10 MG, SINGLE
     Route: 041
     Dates: start: 20150123, end: 20150123
  18. METHYLPREDNISOLONE. [Concomitant]
     Active Substance: METHYLPREDNISOLONE
     Dosage: 40 MG, 2X/DAY
     Route: 041
     Dates: start: 20150124, end: 20150124
  19. CALCIUM GLUCONATE. [Concomitant]
     Active Substance: CALCIUM GLUCONATE
     Indication: NUTRITIONAL SUPPLEMENTATION
     Dosage: 10 ML, SINGLE
     Route: 041
     Dates: start: 20150125, end: 20150125
  20. ALANYL-GLUTAMINE [Concomitant]
     Indication: LARGE INTESTINE PERFORATION
     Dosage: 20 G, 1X/DAY
     Route: 041
     Dates: start: 20150119
  21. TRAMADOL [Concomitant]
     Active Substance: TRAMADOL
     Dosage: 100 MG, SINGLE
     Route: 030
     Dates: start: 20150121, end: 20150121
  22. FUROSEMIDE. [Concomitant]
     Active Substance: FUROSEMIDE
     Dosage: 5 MG, SINGLE
     Route: 041
     Dates: start: 20150125, end: 20150125
  23. TORASEMIDE [Concomitant]
     Active Substance: TORSEMIDE
     Indication: POLYURIA
     Dosage: 5 MG, SINGLE
     Route: 041
     Dates: start: 20150121, end: 20150121
  24. VITAMIN B1 [Concomitant]
     Active Substance: THIAMINE HYDROCHLORIDE
     Indication: LARGE INTESTINE PERFORATION
     Dosage: 100 MG, 1X/DAY
     Route: 030
     Dates: start: 20150120
  25. FUROSEMIDE. [Concomitant]
     Active Substance: FUROSEMIDE
     Indication: POLYURIA
     Dosage: 20 MG, 1X/DAY
     Route: 041
     Dates: start: 20150120, end: 20150121
  26. FUROSEMIDE. [Concomitant]
     Active Substance: FUROSEMIDE
     Dosage: 10 MG, SINGLE
     Route: 041
     Dates: start: 20150127, end: 20150130
  27. TORASEMIDE [Concomitant]
     Active Substance: TORSEMIDE
     Dosage: 10 MG, SINGLE
     Route: 041
     Dates: start: 20150124, end: 20150124
  28. POTASSIUM CHLORIDE. [Concomitant]
     Active Substance: POTASSIUM CHLORIDE
     Indication: NUTRITIONAL SUPPLEMENTATION
     Dosage: 2 G, 1X/DAY
     Route: 041
     Dates: start: 20150121, end: 20150121
  29. MULTI-VITAMINS VITAFIT [Concomitant]
     Indication: LARGE INTESTINE PERFORATION
     Dosage: 1 BOTTLE, 1X/DAY
     Route: 041
     Dates: start: 20150119
  30. DEXMEDETOMIDINE [Concomitant]
     Active Substance: DEXMEDETOMIDINE
     Indication: ANALGESIC THERAPY
     Dosage: 0.2 MG, 2X/DAY
     Route: 041
     Dates: start: 20150124, end: 20150124
  31. CALCIUM GLUCONATE. [Concomitant]
     Active Substance: CALCIUM GLUCONATE
     Dosage: 20 ML, SINGLE
     Route: 041
     Dates: start: 20150130, end: 20150130

REACTIONS (3)
  - Atrial fibrillation [Not Recovered/Not Resolved]
  - Drug ineffective [Fatal]
  - Lung infection [Fatal]

NARRATIVE: CASE EVENT DATE: 20150121
